FAERS Safety Report 15633587 (Version 1)
Quarter: 2018Q4

REPORT INFORMATION
  Report Type: Spontaneous
  Country: US (occurrence: US)
  Receive Date: 20181119
  Receipt Date: 20181119
  Transmission Date: 20190205
  Serious: No
  Sender: FDA-Public Use
  Company Number: US-VIFOR (INTERNATIONAL) INC.-VIT-2018-11226

PATIENT
  Sex: Male

DRUGS (9)
  1. FLONASE ALLERGY RELIEF [Concomitant]
     Active Substance: FLUTICASONE PROPIONATE
  2. CLARITIN [Concomitant]
     Active Substance: LORATADINE
  3. ASPIRIN 81 [Concomitant]
     Active Substance: ASPIRIN
  4. TACROLIMUS. [Concomitant]
     Active Substance: TACROLIMUS
  5. CALCIUM PLUS D [Concomitant]
     Active Substance: CALCIUM\VITAMIN D
  6. VELTASSA [Suspect]
     Active Substance: PATIROMER
     Indication: HYPERKALAEMIA
     Route: 048
     Dates: start: 20180220
  7. FLOMAX [Concomitant]
     Active Substance: TAMSULOSIN HYDROCHLORIDE
  8. MYFORTIC [Concomitant]
     Active Substance: MYCOPHENOLATE SODIUM
  9. MAGNESIUM [Concomitant]
     Active Substance: MAGNESIUM

REACTIONS (2)
  - Product dose omission [Unknown]
  - No adverse event [Unknown]

NARRATIVE: CASE EVENT DATE: 2018
